FAERS Safety Report 5692462-7 (Version None)
Quarter: 2008Q2

REPORT INFORMATION
  Report Type: 
  Country: None (occurrence: None)
  Receive Date: 20080402
  Receipt Date: 20070904
  Transmission Date: 20081010
  Serious: No
  Sender: FDA-Public Use
  Company Number: US-BAYER-US-2007-033594

PATIENT
  Age: 60 Year
  Sex: Female
  Weight: 39 kg

DRUGS (7)
  1. LEUKINE [Suspect]
     Indication: NEUTROPENIA
     Route: 058
     Dates: start: 20070814
  2. NEXIUM /UNK/ [Concomitant]
  3. PAXIL [Concomitant]
  4. XANAX [Concomitant]
  5. ZOCOR [Concomitant]
  6. LISINOPRIL [Concomitant]
  7. CLARITIN [Concomitant]

REACTIONS (2)
  - DYSPNOEA [None]
  - NAUSEA [None]
